FAERS Safety Report 10036483 (Version 1)
Quarter: 2014Q1

REPORT INFORMATION
  Report Type: Spontaneous
  Country: MX (occurrence: MX)
  Receive Date: 20140326
  Receipt Date: 20140326
  Transmission Date: 20141002
  Serious: Yes (Other)
  Sender: FDA-Public Use
  Company Number: MX-UCBSA-114913

PATIENT
  Age: 83 Year
  Sex: Male
  Weight: 50 kg

DRUGS (5)
  1. NUBRENZA [Suspect]
     Indication: PARKINSON^S DISEASE
     Dates: start: 201301
  2. NUBRENZA [Suspect]
     Indication: PARKINSON^S DISEASE
  3. NUBRENZA [Suspect]
     Indication: PARKINSON^S DISEASE
  4. PRAZOSINE [Concomitant]
  5. LEVODOPA/CARBIDOPA [Concomitant]

REACTIONS (6)
  - Arrhythmia [Unknown]
  - Oedema [Recovered/Resolved]
  - Muscle rigidity [Recovered/Resolved]
  - Rash [Recovered/Resolved]
  - Hallucination [Not Recovered/Not Resolved]
  - Product adhesion issue [Unknown]
